FAERS Safety Report 10234418 (Version 1)
Quarter: 2014Q2

REPORT INFORMATION
  Report Type: Spontaneous
  Country: GR (occurrence: GR)
  Receive Date: 20140612
  Receipt Date: 20140612
  Transmission Date: 20141212
  Serious: Yes (Disabling, Other)
  Sender: FDA-Public Use
  Company Number: GR-BRISTOL-MYERS SQUIBB COMPANY-21008859

PATIENT
  Age: 84 Year
  Sex: Male

DRUGS (2)
  1. GLUCOPHAGE TABS [Suspect]
     Indication: TYPE 2 DIABETES MELLITUS
     Route: 048
  2. DIAMICRON [Suspect]
     Indication: TYPE 2 DIABETES MELLITUS
     Route: 048

REACTIONS (2)
  - Pelvic fracture [Unknown]
  - Fall [Unknown]
